FAERS Safety Report 7301373-2 (Version None)
Quarter: 2011Q1

REPORT INFORMATION
  Report Type: 
  Country: None (occurrence: None)
  Receive Date: 20110218
  Receipt Date: 20110205
  Transmission Date: 20110831
  Serious: Yes (Hospitalization, Other)
  Sender: FDA-Public Use
  Company Number: PHHO2007BR17868

PATIENT
  Sex: Female
  Weight: 80 kg

DRUGS (4)
  1. BAMIFIX [Concomitant]
     Indication: DYSPNOEA
     Dosage: 2 DF, QD
     Route: 048
  2. MANIDIPINE [Concomitant]
  3. DIOVAN HCT [Suspect]
     Dosage: UNK, NO TREATMENT
  4. DIOVAN HCT [Suspect]
     Indication: HYPERTENSION
     Dosage: 1 DF, QD
     Route: 048
     Dates: start: 20050101, end: 20060101

REACTIONS (8)
  - CARDIO-RESPIRATORY ARREST [None]
  - VISION BLURRED [None]
  - DIZZINESS [None]
  - MENTAL IMPAIRMENT [None]
  - HEADACHE [None]
  - SOMNOLENCE [None]
  - NECK PAIN [None]
  - DRY MOUTH [None]
